FAERS Safety Report 4416287-5 (Version None)
Quarter: 2004Q3

REPORT INFORMATION
  Report Type: 
  Country: None (occurrence: None)
  Receive Date: 20040805
  Receipt Date: 20040713
  Transmission Date: 20050211
  Serious: Yes (Life-Threatening, Disabling, Other)
  Sender: FDA-Public Use
  Company Number: US-MERCK-0407USA01144

PATIENT
  Age: 93 Year
  Sex: Female
  Weight: 47 kg

DRUGS (3)
  1. FOSAMAX [Concomitant]
     Indication: OSTEOPOROSIS
     Route: 048
  2. VIOXX [Suspect]
     Indication: BACK PAIN
     Route: 048
     Dates: start: 20030805, end: 20040702
  3. VIOXX [Suspect]
     Indication: ARTHRITIS
     Route: 048
     Dates: start: 20030805, end: 20040702

REACTIONS (3)
  - ANAEMIA [None]
  - FAECAL OCCULT BLOOD POSITIVE [None]
  - GASTROINTESTINAL HAEMORRHAGE [None]
